FAERS Safety Report 5317832-8 (Version None)
Quarter: 2007Q2

REPORT INFORMATION
  Report Type: 
  Country: None (occurrence: None)
  Receive Date: 20070502
  Receipt Date: 20070502
  Transmission Date: 20071010
  Serious: Yes (Life-Threatening, Disabling)
  Sender: FDA-Public Use
  Company Number: None

PATIENT
  Age: 71 Year
  Sex: Female
  Weight: 97.5234 kg

DRUGS (1)
  1. BUCKLEY'S MIXTURE: NOVARTIS CONSUMER HEALTH S.A. [Suspect]
     Indication: COUGH
     Dosage: 1/2 TSP. 1 DOSE
     Dates: start: 20070330

REACTIONS (7)
  - BLOOD PRESSURE INCREASED [None]
  - DIZZINESS [None]
  - DYSGEUSIA [None]
  - FEELING HOT [None]
  - HEART RATE INCREASED [None]
  - STRABISMUS [None]
  - VISION BLURRED [None]
